FAERS Safety Report 5990856-3 (Version None)
Quarter: 2008Q4

REPORT INFORMATION
  Report Type: 
  Country: None (occurrence: None)
  Receive Date: 20081211
  Receipt Date: 20081128
  Transmission Date: 20090506
  Serious: Yes (Hospitalization, Congenital Anomaly)
  Sender: FDA-Public Use
  Company Number: JP-PFIZER INC-2008150256

PATIENT

DRUGS (16)
  1. LIPITOR [Suspect]
     Indication: HYPERLIPIDAEMIA
     Dosage: 5 MG, 1X/DAY
     Route: 048
  2. PREDNISOLONE AND PREDNISOLONE STEAGLATE [Suspect]
     Indication: LUPUS NEPHRITIS
     Dosage: UNK
     Route: 048
     Dates: end: 20070816
  3. PREDNISOLONE AND PREDNISOLONE STEAGLATE [Suspect]
     Dosage: UNK
     Route: 048
     Dates: start: 20070817, end: 20071206
  4. PREDNISOLONE AND PREDNISOLONE STEAGLATE [Suspect]
     Dosage: UNK
     Route: 048
     Dates: start: 20071207, end: 20080104
  5. PREDNISOLONE AND PREDNISOLONE STEAGLATE [Suspect]
     Dosage: UNK
     Route: 048
     Dates: start: 20080105, end: 20080509
  6. PROGRAF [Suspect]
     Indication: LUPUS NEPHRITIS
     Dosage: UNK
     Dates: start: 20070419, end: 20070530
  7. PROGRAF [Suspect]
     Dosage: UNK
     Dates: start: 20080531
  8. ONE-ALPHA [Suspect]
     Dosage: UNK
     Route: 048
  9. NU LOTAN [Suspect]
     Indication: BLOOD PRESSURE INCREASED
     Dosage: 25 MG, 1X/DAY
     Route: 048
     Dates: end: 20080304
  10. NU LOTAN [Suspect]
     Dosage: 50 MG, 1X/DAY
     Route: 048
     Dates: start: 20080305
  11. TAGAMET [Suspect]
     Dosage: 200 MG, 1X/DAY
     Route: 048
     Dates: end: 20080309
  12. ISCOTIN [Suspect]
     Indication: PROPHYLAXIS
     Dosage: 300 MG, 1X/DAY
     Route: 048
     Dates: start: 20080229, end: 20080711
  13. REMICADE [Suspect]
     Indication: LUPUS NEPHRITIS
     Dosage: 200 MG, 1X/DAY
     Dates: start: 20080229, end: 20080229
  14. REMICADE [Suspect]
     Dosage: 200 MG, 1X/DAY
     Route: 048
     Dates: start: 20080314, end: 20080314
  15. REMICADE [Suspect]
     Dosage: 200 MG, 1X/DAY
     Route: 048
     Dates: start: 20080410, end: 20080410
  16. PREDNISOLONE [Concomitant]
     Indication: LUPUS NEPHRITIS
     Dosage: UNK
     Route: 048
     Dates: start: 20080711

REACTIONS (1)
  - ABORTION MISSED [None]
